FAERS Safety Report 12329310 (Version 4)
Quarter: 2016Q3

REPORT INFORMATION
  Report Type: Spontaneous
  Country: US (occurrence: US)
  Receive Date: 20160503
  Receipt Date: 20160815
  Transmission Date: 20161109
  Serious: Yes (Death, Hospitalization, Other)
  Sender: FDA-Public Use
  Company Number: US-AMGEN-USASP2016044934

PATIENT
  Age: 91 Year
  Sex: Male

DRUGS (1)
  1. IMLYGIC [Suspect]
     Active Substance: TALIMOGENE LAHERPAREPVEC
     Indication: MALIGNANT MELANOMA
     Dosage: UNK, 10X6 DOSE
     Route: 065
     Dates: start: 20160328

REACTIONS (5)
  - Adverse drug reaction [Fatal]
  - Multiple organ dysfunction syndrome [Unknown]
  - White blood cell count increased [Unknown]
  - Tumour flare [Unknown]
  - Pyrexia [Unknown]

NARRATIVE: CASE EVENT DATE: 2016
